FAERS Safety Report 17567319 (Version 1)
Quarter: 2020Q1

REPORT INFORMATION
  Report Type: Spontaneous
  Country: US (occurrence: US)
  Receive Date: 20200320
  Receipt Date: 20200320
  Transmission Date: 20200409
  Serious: No
  Sender: FDA-Public Use
  Company Number: US-HIKMA PHARMACEUTICALS USA INC.-US-H14001-19-05140

PATIENT
  Age: 79 Year
  Sex: Female
  Weight: 90.8 kg

DRUGS (2)
  1. FLUTICASONE PROPIONATE. [Suspect]
     Active Substance: FLUTICASONE PROPIONATE
     Indication: EOSINOPHILIC OESOPHAGITIS
     Route: 065
     Dates: start: 20190901
  2. SPLENDA [Concomitant]
     Active Substance: SUCRALOSE
     Indication: EOSINOPHILIC OESOPHAGITIS
     Route: 065

REACTIONS (3)
  - Off label use [Not Recovered/Not Resolved]
  - Dizziness [Not Recovered/Not Resolved]
  - Balance disorder [Not Recovered/Not Resolved]

NARRATIVE: CASE EVENT DATE: 20190901
